FAERS Safety Report 8984432 (Version 2)
Quarter: 2013Q1

REPORT INFORMATION
  Report Type: Report from Study
  Country: JP (occurrence: JP)
  Receive Date: 20121225
  Receipt Date: 20130206
  Transmission Date: 20140127
  Serious: Yes (Death)
  Sender: FDA-Public Use
  Company Number: JP-SANOFI-AVENTIS-2012SA093127

PATIENT
  Age: 76 Year
  Sex: Female
  Weight: 45.7 kg

DRUGS (5)
  1. LANTUS SOLOSTAR [Suspect]
     Indication: TYPE 2 DIABETES MELLITUS
     Dosage: DOSE:14 UNIT(S)
     Route: 058
     Dates: start: 20120425, end: 20120512
  2. SOLOSTAR [Suspect]
     Indication: DEVICE THERAPY
     Dates: start: 20120425, end: 20120512
  3. GLUCOBAY [Concomitant]
     Indication: TYPE 2 DIABETES MELLITUS
     Route: 048
     Dates: end: 20120512
  4. INSULIN DETEMIR [Concomitant]
     Indication: TYPE 2 DIABETES MELLITUS
     Dosage: BEFORE BREAKFAST DOSE:12 UNIT(S)
     Route: 058
     Dates: end: 20120512
  5. MERCAZOLE [Concomitant]
     Route: 048

REACTIONS (1)
  - Myocardial ischaemia [Fatal]
